FAERS Safety Report 20660289 (Version 1)
Quarter: 2022Q1

REPORT INFORMATION
  Report Type: Spontaneous
  Country: US (occurrence: US)
  Receive Date: 20220331
  Receipt Date: 20220331
  Transmission Date: 20220423
  Serious: No
  Sender: FDA-Public Use
  Company Number: US-IBSA PHARMA INC.-2021-IBS-01785

PATIENT

DRUGS (2)
  1. DICLOFENAC EPOLAMINE [Suspect]
     Active Substance: DICLOFENAC EPOLAMINE
     Indication: Product used for unknown indication
     Route: 062
  2. HERBALS\MITRAGYNINE [Concomitant]
     Active Substance: HERBALS\MITRAGYNINE
     Indication: Arthralgia

REACTIONS (1)
  - Extra dose administered [Unknown]
